FAERS Safety Report 9129395 (Version 1)
Quarter: 2013Q1

REPORT INFORMATION
  Report Type: Spontaneous
  Country: US (occurrence: US)
  Receive Date: 20130228
  Receipt Date: 20130228
  Transmission Date: 20140127
  Serious: No
  Sender: FDA-Public Use
  Company Number: US-ABBOTT-13P-163-1036427-00

PATIENT
  Sex: Male

DRUGS (4)
  1. ANDROGEL [Suspect]
     Indication: BLOOD TESTOSTERONE DECREASED
     Dosage: 40.5MG DAILY, FOR APPROXIMATELY 2 WEEKS
     Dates: start: 201301
  2. ANDROGEL [Suspect]
     Dosage: 5 GRAM PACKETS/2 DAILY, FOR APPROXIMATELY 4 YEARS
     Dates: start: 2009, end: 201301
  3. FINASTERIDE [Concomitant]
     Indication: PROSTATOMEGALY
  4. METFORMIN [Concomitant]
     Indication: DIABETES MELLITUS

REACTIONS (2)
  - Fatigue [Not Recovered/Not Resolved]
  - Libido decreased [Not Recovered/Not Resolved]
